FAERS Safety Report 15241488 (Version 1)
Quarter: 2018Q3

REPORT INFORMATION
  Report Type: Spontaneous
  Country: US (occurrence: US)
  Receive Date: 20180712
  Receipt Date: 20180712
  Transmission Date: 20181010
  Serious: Yes (Hospitalization)
  Sender: FDA-Public Use
  Company Number: None

PATIENT
  Age: 18 Year
  Sex: Female
  Weight: 77.11 kg

DRUGS (5)
  1. MIDORINE [Concomitant]
     Active Substance: MIDODRINE
  2. MIRENA [Suspect]
     Active Substance: LEVONORGESTREL
     Dates: start: 20180206, end: 20180619
  3. YAZ [Concomitant]
     Active Substance: DROSPIRENONE\ETHINYL ESTRADIOL
  4. ZOFRAN [Concomitant]
     Active Substance: ONDANSETRON HYDROCHLORIDE
  5. NATURE?THROID [Concomitant]
     Active Substance: THYROID, PORCINE

REACTIONS (3)
  - Uterine pain [None]
  - Ovarian cyst [None]
  - Embedded device [None]

NARRATIVE: CASE EVENT DATE: 20180619
